FAERS Safety Report 22336496 (Version 1)
Quarter: 2023Q2

REPORT INFORMATION
  Report Type: Spontaneous
  Country: US (occurrence: None)
  Receive Date: 20230518
  Receipt Date: 20230518
  Transmission Date: 20230721
  Serious: No
  Sender: FDA-Public Use
  Company Number: US-ROCHE-3169270

PATIENT
  Sex: Female

DRUGS (19)
  1. ACTEMRA [Suspect]
     Active Substance: TOCILIZUMAB
     Indication: Rheumatoid arthritis
     Dosage: STRENGTH;162MG/0.9M
     Route: 058
     Dates: start: 20220228
  2. ACTEMRA [Suspect]
     Active Substance: TOCILIZUMAB
  3. AMITRIPTYLINE [Concomitant]
     Active Substance: AMITRIPTYLINE
  4. AMLODIPINE [Concomitant]
     Active Substance: AMLODIPINE BESYLATE
  5. ATORVASTATIN [Concomitant]
     Active Substance: ATORVASTATIN
  6. BIOTIN [Concomitant]
     Active Substance: BIOTIN
  7. CALCIUM [Concomitant]
     Active Substance: CALCIUM
  8. CHLORTHALIDONE [Concomitant]
     Active Substance: CHLORTHALIDONE
  9. DEXILANT [Concomitant]
     Active Substance: DEXLANSOPRAZOLE
  10. ECHINACEA [Concomitant]
     Active Substance: ECHINACEA, UNSPECIFIED
  11. HERBALS [Concomitant]
     Active Substance: HERBALS
  12. MELOXICAM [Concomitant]
     Active Substance: MELOXICAM
  13. METOPROLOL [Concomitant]
     Active Substance: METOPROLOL
  14. MONTELUKAST [Concomitant]
     Active Substance: MONTELUKAST SODIUM
  15. NEURONTIN [Concomitant]
     Active Substance: GABAPENTIN
  16. TIZANIDINE [Concomitant]
     Active Substance: TIZANIDINE
  17. TRAMADOL [Concomitant]
     Active Substance: TRAMADOL
  18. HERBALS\TURMERIC [Concomitant]
     Active Substance: HERBALS\TURMERIC
  19. VITAMIN D [Concomitant]
     Active Substance: VITAMIN D NOS

REACTIONS (3)
  - Ligament sprain [Unknown]
  - Contusion [Unknown]
  - Exostosis [Unknown]
